FAERS Safety Report 13931303 (Version 3)
Quarter: 2018Q3

REPORT INFORMATION
  Report Type: Report from Study
  Country: US (occurrence: US)
  Receive Date: 20170903
  Receipt Date: 20180709
  Transmission Date: 20181010
  Serious: Yes (Other)
  Sender: FDA-Public Use
  Company Number: PHEH2017US027861

PATIENT
  Sex: Female

DRUGS (2)
  1. AFINITOR [Suspect]
     Active Substance: EVEROLIMUS
     Indication: ANGIOMYOLIPOMA
  2. AFINITOR [Suspect]
     Active Substance: EVEROLIMUS
     Indication: TUBEROUS SCLEROSIS COMPLEX
     Dosage: 10 MG, M?F
     Route: 048
     Dates: start: 20131005

REACTIONS (5)
  - Blood creatinine decreased [Unknown]
  - Glomerular filtration rate decreased [Unknown]
  - Protein urine present [Not Recovered/Not Resolved]
  - Blood urea increased [Unknown]
  - Renal impairment [Not Recovered/Not Resolved]
